FAERS Safety Report 9278681 (Version 7)
Quarter: 2013Q3

REPORT INFORMATION
  Report Type: Spontaneous
  Country: US (occurrence: US)
  Receive Date: 20130508
  Receipt Date: 20130809
  Transmission Date: 20140515
  Serious: Yes (Other)
  Sender: FDA-Public Use
  Company Number: US-PFIZER INC-2013137718

PATIENT
  Age: 49 Year
  Sex: Male

DRUGS (2)
  1. BOSULIF [Suspect]
     Indication: CHRONIC MYELOID LEUKAEMIA
     Dosage: 500 MG, 1X/DAY
     Route: 048
     Dates: start: 20130426
  2. BOSULIF [Suspect]
     Dosage: 400 MG, UNK
     Dates: start: 201307

REACTIONS (8)
  - Renal neoplasm [Unknown]
  - Nausea [Recovering/Resolving]
  - Diarrhoea [Unknown]
  - Hypotension [Unknown]
  - Headache [Unknown]
  - Vomiting [Recovering/Resolving]
  - Hepatic enzyme increased [Unknown]
  - Drug intolerance [Unknown]
